FAERS Safety Report 5007618-6 (Version None)
Quarter: 2006Q2

REPORT INFORMATION
  Report Type: 
  Country: None (occurrence: None)
  Receive Date: 20060522
  Receipt Date: 20060407
  Transmission Date: 20061013
  Serious: Yes (Hospitalization)
  Sender: FDA-Public Use
  Company Number: FR-SANOFI-SYNTHELABO-F01200600975

PATIENT
  Sex: Male

DRUGS (4)
  1. OXALIPLATIN [Suspect]
     Indication: COLORECTAL CANCER METASTATIC
     Route: 042
     Dates: start: 20060315, end: 20060315
  2. AVASTIN [Suspect]
     Route: 042
     Dates: start: 20060314, end: 20060314
  3. CAPECITABINE [Suspect]
     Dosage: DAILY FOR 7 DAYS
     Route: 048
     Dates: end: 20060320
  4. OXYCONTIN [Suspect]
     Dosage: UNK
     Route: 065

REACTIONS (3)
  - DIARRHOEA [None]
  - DIZZINESS [None]
  - HAEMORRHOIDS [None]
